FAERS Safety Report 5569135-4 (Version None)
Quarter: 2007Q4

REPORT INFORMATION
  Report Type: 
  Country: None (occurrence: None)
  Receive Date: 20071220
  Receipt Date: 20070730
  Transmission Date: 20080405
  Serious: No
  Sender: FDA-Public Use
  Company Number: A0666895A

PATIENT
  Age: 76 Year
  Sex: Male

DRUGS (8)
  1. AVODART [Suspect]
     Indication: BENIGN PROSTATIC HYPERPLASIA
     Dosage: .5MG PER DAY
     Route: 048
     Dates: start: 20060101
  2. LEVOXYL [Concomitant]
  3. VERAPAMIL [Concomitant]
  4. LOVASTATIN [Concomitant]
  5. NADOLOL [Concomitant]
  6. COUMADIN [Concomitant]
  7. HYDROCHLOROTHIAZIDE [Concomitant]
  8. ASPIRIN [Concomitant]

REACTIONS (3)
  - BREAST ENLARGEMENT [None]
  - BREAST TENDERNESS [None]
  - DRUG INEFFECTIVE [None]
